FAERS Safety Report 4466136-4 (Version None)
Quarter: 2004Q4

REPORT INFORMATION
  Report Type: 
  Country: None (occurrence: None)
  Receive Date: 20041005
  Receipt Date: 20040923
  Transmission Date: 20050328
  Serious: Yes (Hospitalization)
  Sender: FDA-Public Use
  Company Number: US-JNJFOC-20040908162

PATIENT
  Age: 59 Year
  Sex: Female

DRUGS (3)
  1. DURAGESIC [Suspect]
     Dosage: (2) 100 UG/HR PATCHES + (1) 50 UG/HR PATCH
     Route: 062
     Dates: start: 20020901
  2. DURAGESIC [Suspect]
     Dosage: (1) 100 UG/HR PATCH + (1) 25 UG/HR PATCH
     Route: 062
     Dates: start: 20020901
  3. DURAGESIC [Suspect]
     Indication: CANCER PAIN
     Route: 062
     Dates: start: 20020901

REACTIONS (1)
  - PAIN EXACERBATED [None]
